FAERS Safety Report 8602710-9 (Version None)
Quarter: 2012Q3

REPORT INFORMATION
  Report Type: 
  Country: None (occurrence: None)
  Receive Date: 20120817
  Receipt Date: 20120806
  Transmission Date: 20120928
  Serious: Yes (Hospitalization)
  Sender: FDA-Public Use
  Company Number: DE-ARROW-2012-14032

PATIENT
  Age: 63 Year
  Sex: Female
  Weight: 53 kg

DRUGS (3)
  1. CIPROFLOXACIN HCL [Suspect]
     Indication: DIVERTICULITIS
     Dosage: UNK
     Route: 048
     Dates: start: 20110601
  2. CHOLESTERINSYNTHESEHEMMER [Concomitant]
     Indication: HYPERCHOLESTEROLAEMIA
     Dosage: UNK
     Route: 048
     Dates: start: 20110901, end: 20110901
  3. LEVOTHYROXINE SODIUM [Concomitant]
     Indication: HYPOTHYROIDISM
     Dosage: 75 MCG, DAILY
     Route: 048

REACTIONS (3)
  - SLEEP DISORDER [None]
  - PAIN [None]
  - ARTHROPATHY [None]
